FAERS Safety Report 13363171 (Version 1)
Quarter: 2017Q1

REPORT INFORMATION
  Report Type: Spontaneous
  Country: US (occurrence: US)
  Receive Date: 20170322
  Receipt Date: 20170322
  Transmission Date: 20170429
  Serious: Yes (Hospitalization)
  Sender: FDA-Public Use
  Company Number: None

PATIENT
  Age: 73 Year
  Sex: Female
  Weight: 59.5 kg

DRUGS (1)
  1. CAPECITANINE 150MG AND 500MG [Suspect]
     Active Substance: CAPECITABINE
     Indication: GASTROINTESTINAL CARCINOMA
     Dosage: 1BID14D ON AND 7D OFF
     Route: 048
     Dates: start: 20160927

REACTIONS (2)
  - Intestinal obstruction [None]
  - Paraesthesia [None]

NARRATIVE: CASE EVENT DATE: 20170109
